FAERS Safety Report 6970378-3 (Version None)
Quarter: 2010Q3

REPORT INFORMATION
  Report Type: 
  Country: None (occurrence: None)
  Receive Date: 20100903
  Receipt Date: 20100823
  Transmission Date: 20110219
  Serious: Yes (Other)
  Sender: FDA-Public Use
  Company Number: 2010SP001804

PATIENT
  Age: 40 Year
  Sex: Female
  Weight: 63.5 kg

DRUGS (6)
  1. OMNARIS [Suspect]
     Indication: RHINITIS ALLERGIC
     Dosage: 200 UG; QD; NASAL
     Route: 045
     Dates: start: 20100501
  2. MINOCIN [Suspect]
     Indication: DERMATITIS
     Dosage: 100 MG; QD; ORAL, 0 MG; QD; ORAL
     Route: 048
     Dates: start: 20100607, end: 20100601
  3. MINOCIN [Suspect]
     Indication: LICHEN PLANUS
     Dosage: 100 MG; QD; ORAL, 0 MG; QD; ORAL
     Route: 048
     Dates: start: 20100607, end: 20100601
  4. MINOCIN [Suspect]
     Indication: DERMATITIS
     Dosage: 100 MG; QD; ORAL, 0 MG; QD; ORAL
     Route: 048
     Dates: start: 20100618, end: 20100622
  5. MINOCIN [Suspect]
     Indication: LICHEN PLANUS
     Dosage: 100 MG; QD; ORAL, 0 MG; QD; ORAL
     Route: 048
     Dates: start: 20100618, end: 20100622
  6. SYMBICORT [Concomitant]

REACTIONS (13)
  - ARTHRALGIA [None]
  - DYSPEPSIA [None]
  - HEADACHE [None]
  - HEPATIC ENZYME INCREASED [None]
  - IDIOPATHIC THROMBOCYTOPENIC PURPURA [None]
  - MUSCULOSKELETAL STIFFNESS [None]
  - MYALGIA [None]
  - PAIN [None]
  - PYREXIA [None]
  - RASH PUSTULAR [None]
  - SERUM SICKNESS-LIKE REACTION [None]
  - VOMITING [None]
  - WHITE BLOOD CELL COUNT DECREASED [None]
